FAERS Safety Report 7885070-0 (Version None)
Quarter: 2011Q4

REPORT INFORMATION
  Report Type: 
  Country: None (occurrence: None)
  Receive Date: 20111102
  Receipt Date: 20111101
  Transmission Date: 20120403
  Serious: Yes (Death, Hospitalization, Other)
  Sender: FDA-Public Use
  Company Number: DE-BRISTOL-MYERS SQUIBB COMPANY-15562861

PATIENT
  Age: 70 Year
  Sex: Male

DRUGS (1)
  1. BELATACEPT [Suspect]
     Indication: RENAL TRANSPLANT
     Route: 042
     Dates: start: 20070106, end: 20110228

REACTIONS (3)
  - RESPIRATORY FAILURE [None]
  - BRONCHIAL CARCINOMA [None]
  - HAEMORRHAGE INTRACRANIAL [None]
